FAERS Safety Report 8246583-5 (Version None)
Quarter: 2012Q1

REPORT INFORMATION
  Report Type: 
  Country: None (occurrence: None)
  Receive Date: 20120330
  Receipt Date: 20120323
  Transmission Date: 20120608
  Serious: Yes (Other)
  Sender: FDA-Public Use
  Company Number: PHHY2012MX026185

PATIENT
  Sex: Female

DRUGS (6)
  1. ZOLEDRONOC ACID [Suspect]
     Indication: OSTEOPOROSIS
     Dosage: 5 MG/100 ML, EACH YEAR
     Route: 042
     Dates: start: 20100101
  2. LEVOTHYROXINE SODIUM [Concomitant]
     Dosage: 1 DF, DAILY
     Dates: start: 20070101
  3. PLAQUENIL [Concomitant]
     Indication: RHEUMATOID ARTHRITIS
     Dates: start: 20090301
  4. LIPITOR [Concomitant]
     Dosage: 1 DF, DAILY
  5. CYMBALTA [Concomitant]
  6. ZOLEDRONOC ACID [Suspect]
     Dosage: 5 MG/100 ML, EACH YEAR
     Route: 042
     Dates: start: 20110117

REACTIONS (12)
  - VISION BLURRED [None]
  - BURNING SENSATION [None]
  - OCULAR HYPERAEMIA [None]
  - NASOPHARYNGITIS [None]
  - EYELID OEDEMA [None]
  - BONE PAIN [None]
  - DIPLOPIA [None]
  - CONJUNCTIVITIS [None]
  - EYE PAIN [None]
  - LACRIMATION INCREASED [None]
  - EYE DISCHARGE [None]
  - INFLUENZA [None]
